FAERS Safety Report 5076544-9 (Version None)
Quarter: 2006Q3

REPORT INFORMATION
  Report Type: 
  Country: None (occurrence: None)
  Receive Date: 20060810
  Receipt Date: 20060731
  Transmission Date: 20061208
  Serious: Yes (Hospitalization, Other)
  Sender: FDA-Public Use
  Company Number: US-JNJFOC-20060405992

PATIENT
  Sex: Male
  Weight: 33.4 kg

DRUGS (5)
  1. REMICADE [Suspect]
  2. REMICADE [Suspect]
     Indication: CROHN'S DISEASE
     Dosage: 5 MG/KG
  3. 5-ASA [Concomitant]
     Route: 048
  4. RIFAXIMIN [Concomitant]
  5. COUMADIN [Concomitant]

REACTIONS (2)
  - CROHN'S DISEASE [None]
  - ILEAL PERFORATION [None]
